FAERS Safety Report 8102775-7 (Version None)
Quarter: 2012Q1

REPORT INFORMATION
  Report Type: 
  Country: None (occurrence: None)
  Receive Date: 20120201
  Receipt Date: 20120126
  Transmission Date: 20120608
  Serious: Yes (Other)
  Sender: FDA-Public Use
  Company Number: US-PFIZER INC-2012023149

PATIENT
  Sex: Female
  Weight: 57 kg

DRUGS (4)
  1. LOSARTAN [Concomitant]
     Dosage: UNK
  2. ESTRING [Suspect]
     Indication: OFF LABEL USE
     Dosage: UNK
  3. ESTRING [Suspect]
     Indication: VAGINAL PROLAPSE
  4. ESTRING [Suspect]
     Indication: BLADDER PROLAPSE

REACTIONS (2)
  - VAGINAL HAEMORRHAGE [None]
  - VAGINAL EROSION [None]
